FAERS Safety Report 8344793-X (Version None)
Quarter: 2012Q2

REPORT INFORMATION
  Report Type: 
  Country: None (occurrence: None)
  Receive Date: 20120508
  Receipt Date: 20101129
  Transmission Date: 20120825
  Serious: Yes (Hospitalization)
  Sender: FDA-Public Use
  Company Number: CA-GLAXOSMITHKLINE-A0887442B

PATIENT
  Sex: Female
  Weight: 58.5 kg

DRUGS (8)
  1. ASPIRIN [Concomitant]
     Indication: PROPHYLAXIS
     Dates: start: 20000101
  2. HYDROMORPHONE HCL [Concomitant]
     Indication: PAIN
     Dates: start: 20100101
  3. LAPATINIB [Suspect]
     Indication: BREAST CANCER METASTATIC
     Dosage: 1000MG PER DAY
     Route: 048
     Dates: start: 20100930
  4. PROCHLORPERAZINE [Concomitant]
     Indication: PROPHYLAXIS
     Dates: start: 20100101
  5. DOCETAXEL [Suspect]
     Indication: BREAST CANCER METASTATIC
     Dosage: 60MGM2 EVERY 3 WEEKS
     Route: 042
     Dates: start: 20100930
  6. LORAZEPAM [Concomitant]
     Indication: PAIN
     Dates: start: 20100101
  7. IBUPROFEN [Concomitant]
     Indication: PAIN
     Dates: start: 20100101
  8. METFORMIN [Concomitant]
     Indication: DIABETES MELLITUS
     Dates: start: 20000101

REACTIONS (2)
  - DIARRHOEA [None]
  - SEPSIS [None]
